FAERS Safety Report 5797111-5 (Version None)
Quarter: 2008Q2

REPORT INFORMATION
  Report Type: 
  Country: None (occurrence: None)
  Receive Date: 20080618
  Receipt Date: 20071130
  Transmission Date: 20081010
  Serious: Yes (Other)
  Sender: FDA-Public Use
  Company Number: 200717608US

PATIENT
  Age: 65 Year
  Sex: Male
  Weight: 109 kg

DRUGS (5)
  1. LANTUS [Suspect]
     Indication: TYPE 2 DIABETES MELLITUS
     Dosage: 32 U QD INJ
     Route: 042
     Dates: start: 20020101
  2. INSULIN [Concomitant]
  3. AMLODIPIONE (NORVASC /00972401/) [Concomitant]
  4. ADENOSINE (TRICOR /00090101/) [Concomitant]
  5. INSULIN (EXUBERA) [Concomitant]

REACTIONS (4)
  - BLOOD GLUCOSE INCREASED [None]
  - GLYCOSYLATED HAEMOGLOBIN INCREASED [None]
  - HYPOGLYCAEMIC UNCONSCIOUSNESS [None]
  - SHOCK HYPOGLYCAEMIC [None]
